FAERS Safety Report 6297361-8 (Version None)
Quarter: 2009Q3

REPORT INFORMATION
  Report Type: 
  Country: None (occurrence: None)
  Receive Date: 20090804
  Receipt Date: 20090804
  Transmission Date: 20100115
  Serious: No
  Sender: FDA-Public Use
  Company Number: None

PATIENT
  Sex: Female
  Weight: 56.6996 kg

DRUGS (1)
  1. ERYTHROMYCIN [Suspect]
     Dosage: 1/4 INCH AS NEEDED - EYES
     Route: 047
     Dates: start: 20090622

REACTIONS (4)
  - EYE PAIN [None]
  - INSOMNIA [None]
  - PAIN [None]
  - PRODUCT QUALITY ISSUE [None]
